FAERS Safety Report 7125325-0 (Version None)
Quarter: 2010Q4

REPORT INFORMATION
  Report Type: 
  Country: None (occurrence: None)
  Receive Date: 20101129
  Receipt Date: 20101118
  Transmission Date: 20110411
  Serious: Yes (Hospitalization)
  Sender: FDA-Public Use
  Company Number: KP-ASTRAZENECA-2010SE55256

PATIENT

DRUGS (2)
  1. SEROQUEL [Suspect]
     Route: 048
  2. RIVOTRIL [Suspect]

REACTIONS (1)
  - LOSS OF CONSCIOUSNESS [None]
